FAERS Safety Report 6243213-9 (Version None)
Quarter: 2009Q2

REPORT INFORMATION
  Report Type: 
  Country: None (occurrence: None)
  Receive Date: 20090624
  Receipt Date: 20090610
  Transmission Date: 20091009
  Serious: Yes (Other)
  Sender: FDA-Public Use
  Company Number: US-JNJFOC-20090607510

PATIENT
  Age: 80 Year
  Sex: Female

DRUGS (1)
  1. RISPERIDONE [Suspect]
     Indication: PSYCHIATRIC SYMPTOM
     Route: 065

REACTIONS (4)
  - DELIRIUM [None]
  - FALL [None]
  - HIP FRACTURE [None]
  - MUSCULOSKELETAL PAIN [None]
